FAERS Safety Report 5057948-7 (Version None)
Quarter: 2006Q3

REPORT INFORMATION
  Report Type: 
  Country: None (occurrence: None)
  Receive Date: 20060721
  Receipt Date: 20060417
  Transmission Date: 20061208
  Serious: Yes (Other)
  Sender: FDA-Public Use
  Company Number: US-GLAXOSMITHKLINE-A0601940A

PATIENT
  Age: 65 Year
  Sex: Female
  Weight: 59.1 kg

DRUGS (2)
  1. AVANDIA [Suspect]
     Dosage: 1.5TAB IN THE MORNING
     Route: 048
  2. METFORMIN [Concomitant]
     Dosage: 500MG THREE TIMES PER DAY

REACTIONS (3)
  - DIABETES MELLITUS INADEQUATE CONTROL [None]
  - DRUG INEFFECTIVE [None]
  - HYPERGLYCAEMIA [None]
